FAERS Safety Report 10154185 (Version 1)
Quarter: 2014Q2

REPORT INFORMATION
  Report Type: Spontaneous
  Country: US (occurrence: US)
  Receive Date: 20140506
  Receipt Date: 20140506
  Transmission Date: 20141212
  Serious: No
  Sender: FDA-Public Use
  Company Number: US-PFIZER INC-2014120497

PATIENT
  Sex: 0

DRUGS (1)
  1. DEPO-PROVERA [Suspect]
     Dosage: 150 MG, UNK
     Route: 030

REACTIONS (3)
  - Hypoaesthesia [Recovered/Resolved]
  - Feeling cold [Recovered/Resolved]
  - Pain [Recovered/Resolved]
